FAERS Safety Report 25688469 (Version 2)
Quarter: 2025Q3

REPORT INFORMATION
  Report Type: Spontaneous
  Country: CA (occurrence: CA)
  Receive Date: 20250818
  Receipt Date: 20250922
  Transmission Date: 20251021
  Serious: Yes (Other)
  Sender: TEVA
  Company Number: CA-TEVA-VS-3363616

PATIENT

DRUGS (6)
  1. METHYLPREDNISOLONE [Suspect]
     Active Substance: METHYLPREDNISOLONE
     Indication: Transplant failure
     Route: 042
  2. METHYLPREDNISOLONE [Suspect]
     Active Substance: METHYLPREDNISOLONE
     Indication: Transplant failure
     Route: 042
  3. TACROLIMUS [Suspect]
     Active Substance: TACROLIMUS
     Indication: Transplant failure
     Route: 065
  4. TACROLIMUS [Suspect]
     Active Substance: TACROLIMUS
     Indication: Transplant failure
     Route: 065
  5. TACROLIMUS [Suspect]
     Active Substance: TACROLIMUS
     Indication: Transplant failure
     Route: 065
  6. BASILIXIMAB [Suspect]
     Active Substance: BASILIXIMAB
     Indication: Transplant failure
     Route: 042

REACTIONS (2)
  - Epstein-Barr virus infection reactivation [Unknown]
  - Off label use [Unknown]
